FAERS Safety Report 13234463 (Version 2)
Quarter: 2017Q1

REPORT INFORMATION
  Report Type: Spontaneous
  Country: US (occurrence: US)
  Receive Date: 20170215
  Receipt Date: 20170330
  Transmission Date: 20170428
  Serious: Yes (Other)
  Sender: FDA-Public Use
  Company Number: US-JNJFOC-20170211272

PATIENT
  Sex: Female

DRUGS (1)
  1. STELARA [Suspect]
     Active Substance: USTEKINUMAB
     Indication: CROHN^S DISEASE
     Route: 058
     Dates: start: 20170210, end: 20170210

REACTIONS (7)
  - Flushing [Unknown]
  - Nausea [Unknown]
  - Infusion related reaction [Unknown]
  - Rash [Unknown]
  - Hypoaesthesia oral [Unknown]
  - Mouth swelling [Unknown]
  - Dyspnoea [Unknown]
